FAERS Safety Report 11639626 (Version 1)
Quarter: 2015Q4

REPORT INFORMATION
  Report Type: Spontaneous
  Country: US (occurrence: None)
  Receive Date: 20151015
  Receipt Date: 20151015
  Transmission Date: 20160304
  Serious: Yes (Other)
  Sender: FDA-Public Use
  Company Number: US2015GSK145267

PATIENT
  Age: 45 Year
  Sex: Female

DRUGS (3)
  1. TUMS [Suspect]
     Active Substance: CALCIUM CARBONATE
     Indication: BLOOD CALCIUM DECREASED
  2. CALCIUM CARBONATE (CALCIUM CARBONATE) [Suspect]
     Active Substance: CALCIUM CARBONATE
     Indication: PRODUCT USED FOR UNKNOWN INDICATION
  3. CALCIUM ANTACID [Suspect]
     Active Substance: CALCIUM CARBONATE
     Indication: PRODUCT USED FOR UNKNOWN INDICATION

REACTIONS (3)
  - Product use issue [None]
  - Loss of consciousness [None]
  - Vomiting [None]

NARRATIVE: CASE EVENT DATE: 20150625
